FAERS Safety Report 12981863 (Version 1)
Quarter: 2016Q4

REPORT INFORMATION
  Report Type: Spontaneous
  Country: DE (occurrence: DE)
  Receive Date: 20161129
  Receipt Date: 20161129
  Transmission Date: 20170207
  Serious: Yes (Other)
  Sender: FDA-Public Use
  Company Number: DE-AUROBINDO-AUR-APL-2016-14850

PATIENT
  Age: 74 Year
  Sex: Male

DRUGS (12)
  1. MIRTAZAPINE 30MG [Suspect]
     Active Substance: MIRTAZAPINE
     Indication: PRODUCT USED FOR UNKNOWN INDICATION
     Dosage: 30 MG, UNK
     Route: 048
     Dates: start: 20160409
  2. ESCITALOPRAM LUNDBECK [Suspect]
     Active Substance: ESCITALOPRAM OXALATE
     Dosage: 20 MG, ONCE A DAY
     Route: 048
     Dates: start: 20160314, end: 20160608
  3. THYROXIN [Concomitant]
     Active Substance: LEVOTHYROXINE
     Indication: PRODUCT USED FOR UNKNOWN INDICATION
     Dosage: 100 MCG, ONCE A DAY
     Route: 048
     Dates: start: 2012
  4. URISEC [Concomitant]
     Indication: PRODUCT USED FOR UNKNOWN INDICATION
     Dosage: 60 MG, ONCE A DAY
     Route: 048
     Dates: start: 2015
  5. APROVEL [Concomitant]
     Active Substance: IRBESARTAN
     Indication: PRODUCT USED FOR UNKNOWN INDICATION
     Dosage: 300 MG, ONCE A DAY
     Route: 048
     Dates: start: 2015
  6. OLANZAPINE 2.5MG [Suspect]
     Active Substance: OLANZAPINE
     Dosage: 5 MG, ONCE A DAY
     Route: 048
     Dates: start: 20160615
  7. TAVOR (LORAZEPAM) [Suspect]
     Active Substance: LORAZEPAM
     Dosage: 2 MG, ONCE A DAY
     Route: 048
     Dates: start: 20160623, end: 20160624
  8. FELODIN [Concomitant]
     Active Substance: FELODIPINE
     Indication: PRODUCT USED FOR UNKNOWN INDICATION
     Dosage: 10 MG, ONCE A DAY
     Route: 048
     Dates: start: 2012
  9. OLANZAPINE 2.5MG [Suspect]
     Active Substance: OLANZAPINE
     Indication: PRODUCT USED FOR UNKNOWN INDICATION
     Dosage: 2.5 MG, ONCE A DAY
     Route: 048
     Dates: start: 20160613, end: 20160614
  10. TAVOR (LORAZEPAM) [Suspect]
     Active Substance: LORAZEPAM
     Indication: PRODUCT USED FOR UNKNOWN INDICATION
     Dosage: 3 MG, ONCE A DAY
     Route: 048
     Dates: start: 20160613, end: 20160622
  11. ESCITALOPRAM LUNDBECK [Suspect]
     Active Substance: ESCITALOPRAM OXALATE
     Indication: PRODUCT USED FOR UNKNOWN INDICATION
     Dosage: 10 MG, ONCE A DAY
     Route: 048
     Dates: start: 20160301, end: 20160613
  12. TAVOR (LORAZEPAM) [Suspect]
     Active Substance: LORAZEPAM
     Dosage: 1.5 MG, ONCE A DAY
     Route: 048
     Dates: start: 20160625

REACTIONS (1)
  - Fall [Recovered/Resolved]

NARRATIVE: CASE EVENT DATE: 20160618
